FAERS Safety Report 6174951-4 (Version None)
Quarter: 2009Q2

REPORT INFORMATION
  Report Type: 
  Country: None (occurrence: None)
  Receive Date: 20090430
  Receipt Date: 20081020
  Transmission Date: 20091009
  Serious: No
  Sender: FDA-Public Use
  Company Number: US-ASTRAZENECA-2008UW23408

PATIENT
  Age: 62 Year
  Sex: Female
  Weight: 54.4 kg

DRUGS (10)
  1. NEXIUM [Suspect]
     Indication: GASTROOESOPHAGEAL REFLUX DISEASE
     Route: 048
     Dates: start: 20080801, end: 20081001
  2. NEXIUM [Suspect]
     Route: 048
     Dates: start: 20081020
  3. XOPENEX HFA [Concomitant]
  4. XOPENEX VIA NEBULIZER [Concomitant]
  5. ADVAIR HFA [Concomitant]
  6. TOBI [Concomitant]
  7. BENICAR [Concomitant]
  8. ATIVAN [Concomitant]
  9. MIACALCIN [Concomitant]
  10. VITAMIN D [Concomitant]

REACTIONS (3)
  - PARAESTHESIA ORAL [None]
  - PRURITUS [None]
  - URTICARIA [None]
